FAERS Safety Report 25603092 (Version 1)
Quarter: 2025Q3

REPORT INFORMATION
  Report Type: Spontaneous
  Country: EU (occurrence: EU)
  Receive Date: 20250724
  Receipt Date: 20250724
  Transmission Date: 20251021
  Serious: Yes (Hospitalization, Other)
  Sender: MYLAN
  Company Number: None

PATIENT
  Age: 28 Year
  Sex: Male
  Weight: 73 kg

DRUGS (12)
  1. KETOPROFEN [Suspect]
     Active Substance: KETOPROFEN
     Indication: Product used for unknown indication
     Dates: start: 20250508, end: 20250508
  2. KETOPROFEN [Suspect]
     Active Substance: KETOPROFEN
     Route: 048
     Dates: start: 20250508, end: 20250508
  3. KETOPROFEN [Suspect]
     Active Substance: KETOPROFEN
     Route: 048
     Dates: start: 20250508, end: 20250508
  4. KETOPROFEN [Suspect]
     Active Substance: KETOPROFEN
     Dates: start: 20250508, end: 20250508
  5. PANTOPRAZOLE [Suspect]
     Active Substance: PANTOPRAZOLE
     Indication: Product used for unknown indication
     Dates: start: 20250508, end: 20250508
  6. PANTOPRAZOLE [Suspect]
     Active Substance: PANTOPRAZOLE
     Route: 048
     Dates: start: 20250508, end: 20250508
  7. PANTOPRAZOLE [Suspect]
     Active Substance: PANTOPRAZOLE
     Route: 048
     Dates: start: 20250508, end: 20250508
  8. PANTOPRAZOLE [Suspect]
     Active Substance: PANTOPRAZOLE
     Dates: start: 20250508, end: 20250508
  9. TRAMADOL [Suspect]
     Active Substance: TRAMADOL
     Indication: Product used for unknown indication
     Dates: start: 20250508, end: 20250508
  10. TRAMADOL [Suspect]
     Active Substance: TRAMADOL
     Route: 048
     Dates: start: 20250508, end: 20250508
  11. TRAMADOL [Suspect]
     Active Substance: TRAMADOL
     Route: 048
     Dates: start: 20250508, end: 20250508
  12. TRAMADOL [Suspect]
     Active Substance: TRAMADOL
     Dates: start: 20250508, end: 20250508

REACTIONS (2)
  - Hepatic cytolysis [Recovered/Resolved]
  - Acute kidney injury [Recovered/Resolved]

NARRATIVE: CASE EVENT DATE: 20250511
